FAERS Safety Report 16881975 (Version 2)
Quarter: 2019Q4

REPORT INFORMATION
  Report Type: Spontaneous
  Country: US (occurrence: US)
  Receive Date: 20191003
  Receipt Date: 20191011
  Transmission Date: 20200122
  Serious: Yes (Other)
  Sender: FDA-Public Use
  Company Number: US-PFIZER INC-2019420069

PATIENT
  Age: 50 Year
  Sex: Female
  Weight: 87 kg

DRUGS (15)
  1. PROAIR HFA [Concomitant]
     Active Substance: ALBUTEROL SULFATE
     Indication: WHEEZING
  2. PROAIR HFA [Concomitant]
     Active Substance: ALBUTEROL SULFATE
     Indication: ASTHMA
  3. RELPAX [Suspect]
     Active Substance: ELETRIPTAN HYDROBROMIDE
     Indication: MIGRAINE
     Dosage: 40 MG, AS NEEDED (TAKE 1 TABLET EVERY 12 HOURS AS NEEDED)
     Route: 048
     Dates: start: 20170720
  4. RELPAX [Suspect]
     Active Substance: ELETRIPTAN HYDROBROMIDE
     Dosage: 40 MG, AS NEEDED (TAKE 1 TABLET EVERY 12 HOURS AS NEEDED)
     Route: 048
     Dates: end: 2019
  5. ZOLPIDEM [Concomitant]
     Active Substance: ZOLPIDEM TARTRATE
     Indication: INSOMNIA
     Dosage: 5 MG, AS NEEDED (1 TABLET BY MOUTH NIGHTLY, PRN)
     Route: 048
     Dates: start: 20180620
  6. PROAIR HFA [Concomitant]
     Active Substance: ALBUTEROL SULFATE
     Indication: COUGH
     Dosage: UNK, AS NEEDED (1-2 PUFF INHALE EVERY 4-6 HOURS AS NEEDED (PRN); AS NEEDED)
     Dates: start: 20181109
  7. PROMETHAZINE HCL [Concomitant]
     Active Substance: PROMETHAZINE HYDROCHLORIDE
     Dosage: 25 MG, AS NEEDED(UNWRAP AND INSERT 1 SUPPOSITORY EVERY DAY AS NEEDED)
     Route: 054
  8. KEPPRA [Concomitant]
     Active Substance: LEVETIRACETAM
     Dosage: 500 MG, 2X/DAY
     Route: 048
  9. PHENTERMINE. [Concomitant]
     Active Substance: PHENTERMINE
     Dosage: 37.5 MG, DAILY (1 TABLET BY MOUTH DAILY)
     Route: 048
     Dates: start: 20190115
  10. TIZANIDINE HCL [Concomitant]
     Active Substance: TIZANIDINE HYDROCHLORIDE
     Indication: MUSCULOSKELETAL STIFFNESS
     Dosage: 4 MG, DAILY (TAKE 1 TABLET BY MOUTH EVERY DAY AT BEDTIME)
     Route: 048
     Dates: start: 20181008
  11. TIZANIDINE HCL [Concomitant]
     Active Substance: TIZANIDINE HYDROCHLORIDE
     Indication: MUSCLE SPASMS
  12. LEXAPRO [Concomitant]
     Active Substance: ESCITALOPRAM OXALATE
     Dosage: 20 MG, ONCE A DAY (1 TABLET BY MOUTH IN THE MORNING)
     Route: 048
     Dates: start: 20180525
  13. LEVETIRACETAM. [Concomitant]
     Active Substance: LEVETIRACETAM
     Dosage: 500 MG, TWICE A DAY
     Route: 048
  14. CEFDINIR. [Concomitant]
     Active Substance: CEFDINIR
     Dosage: 600 MG, DAILY (2 CAPSULE BY MOUTH DAILY)
     Route: 048
     Dates: start: 20190215
  15. PHENERGAN [Concomitant]
     Active Substance: PROMETHAZINE HYDROCHLORIDE
     Dosage: 25 MG, 1 IN THE RECTUM AS DIRECTED
     Route: 054
     Dates: start: 20181108

REACTIONS (15)
  - Wound infection bacterial [Recovering/Resolving]
  - Wound [Not Recovered/Not Resolved]
  - Pyrexia [Unknown]
  - Abdominal pain [Unknown]
  - Chronic tonsillitis [Not Recovered/Not Resolved]
  - Wound secretion [Unknown]
  - Malaise [Unknown]
  - Pain in extremity [Unknown]
  - Nausea [Unknown]
  - Recalled product administered [Recovering/Resolving]
  - Puncture site oedema [Unknown]
  - Puncture site erythema [Unknown]
  - Arthralgia [Unknown]
  - Diarrhoea [Unknown]
  - Asthenia [Unknown]

NARRATIVE: CASE EVENT DATE: 20190215
